FAERS Safety Report 5094623-7 (Version None)
Quarter: 2006Q3

REPORT INFORMATION
  Report Type: 
  Country: None (occurrence: None)
  Receive Date: 20060830
  Receipt Date: 20060814
  Transmission Date: 20061208
  Serious: No
  Sender: FDA-Public Use
  Company Number: US200607005242

PATIENT
  Age: 82 Year
  Sex: Female

DRUGS (2)
  1. FORTEO [Suspect]
     Indication: SPINAL COMPRESSION FRACTURE
     Dates: start: 20060621
  2. FORTEO [Concomitant]

REACTIONS (3)
  - MEDICAL DEVICE COMPLICATION [None]
  - PHARMACEUTICAL PRODUCT COMPLAINT [None]
  - SOMNOLENCE [None]
